FAERS Safety Report 7004814-3 (Version None)
Quarter: 2010Q3

REPORT INFORMATION
  Report Type: 
  Country: None (occurrence: None)
  Receive Date: 20100921
  Receipt Date: 20100914
  Transmission Date: 20110219
  Serious: Yes (Hospitalization)
  Sender: FDA-Public Use
  Company Number: US-RB-014896-10

PATIENT
  Age: 27 Year
  Sex: Female

DRUGS (2)
  1. SUBOXONE [Suspect]
     Indication: DRUG DEPENDENCE
     Dosage: TAPERING DOSE. DOSE VARIED
     Route: 060
     Dates: start: 20080101
  2. SUBOXONE [Suspect]
     Route: 060

REACTIONS (2)
  - DRUG DEPENDENCE [None]
  - HEART VALVE STENOSIS [None]
